FAERS Safety Report 13800784 (Version 2)
Quarter: 2017Q3

REPORT INFORMATION
  Report Type: Spontaneous
  Country: US (occurrence: US)
  Receive Date: 20170727
  Receipt Date: 20170829
  Transmission Date: 20171127
  Serious: Yes (Hospitalization)
  Sender: FDA-Public Use
  Company Number: US-TAIHO ONCOLOGY INC-EU-2017-01029

PATIENT
  Age: 63 Year
  Sex: Female
  Weight: 88.08 kg

DRUGS (7)
  1. LORAZEPAM. [Concomitant]
     Active Substance: LORAZEPAM
     Dosage: NI
  2. MORPHINE SULFATE. [Concomitant]
     Active Substance: MORPHINE SULFATE
     Dosage: NI
  3. GABAPENTIN. [Concomitant]
     Active Substance: GABAPENTIN
     Dosage: NI
  4. LONSURF [Suspect]
     Active Substance: TIPIRACIL HYDROCHLORIDE\TRIFLURIDINE
     Indication: RECTOSIGMOID CANCER METASTATIC
     Route: 048
     Dates: start: 20170424, end: 20170714
  5. IBUPROFEN. [Concomitant]
     Active Substance: IBUPROFEN
     Dosage: NI
  6. XARELTO [Concomitant]
     Active Substance: RIVAROXABAN
     Dosage: NI
  7. MILK OF MAGNESIA [Concomitant]
     Active Substance: MAGNESIUM HYDROXIDE
     Dosage: NI

REACTIONS (1)
  - Disease progression [Unknown]

NARRATIVE: CASE EVENT DATE: 20170709
